FAERS Safety Report 19638642 (Version 3)
Quarter: 2021Q4

REPORT INFORMATION
  Report Type: Report from Study
  Country: CN (occurrence: CN)
  Receive Date: 20210730
  Receipt Date: 20211029
  Transmission Date: 20220303
  Serious: Yes (Hospitalization)
  Sender: FDA-Public Use
  Company Number: CN-KARYOPHARM-2021KPT000974

PATIENT
  Age: 33 Year
  Sex: Male

DRUGS (7)
  1. SELINEXOR [Suspect]
     Active Substance: SELINEXOR
     Indication: Peripheral T-cell lymphoma unspecified refractory
     Dosage: 60 MG (D1, D8: 21D/ CYCLE)
     Route: 048
     Dates: start: 20210617, end: 20210617
  2. SELINEXOR [Suspect]
     Active Substance: SELINEXOR
     Indication: Angiocentric lymphoma
     Dosage: 40 MG (D1, D8: 21D/ CYCLE)
     Route: 048
     Dates: start: 20210709, end: 20210709
  3. SELINEXOR [Suspect]
     Active Substance: SELINEXOR
     Dosage: 20 MG (D1, D8: 21D/ CYCLE)
     Route: 048
     Dates: start: 20210715, end: 20210715
  4. GEMCITABINE [Suspect]
     Active Substance: GEMCITABINE
     Indication: Peripheral T-cell lymphoma unspecified refractory
     Dosage: 1536 MG (D1, D8: 21D/ CYCLE)
     Route: 042
     Dates: start: 20210617, end: 20210617
  5. GEMCITABINE [Suspect]
     Active Substance: GEMCITABINE
     Indication: Angiocentric lymphoma
     Dosage: 1536 MG (D1, D8: 21D/ CYCLE)
     Route: 042
     Dates: start: 20210709, end: 20210709
  6. OXALIPLATIN [Suspect]
     Active Substance: OXALIPLATIN
     Indication: Peripheral T-cell lymphoma unspecified refractory
     Dosage: 199.68 MG, 1X/3 WEEKS
     Route: 042
     Dates: start: 20210617, end: 20210617
  7. OXALIPLATIN [Suspect]
     Active Substance: OXALIPLATIN
     Indication: Angiocentric lymphoma
     Dosage: 199.68 MG, 1X/3 WEEKS
     Route: 042
     Dates: start: 20210709, end: 20210709

REACTIONS (1)
  - Platelet count decreased [Recovered/Resolved]

NARRATIVE: CASE EVENT DATE: 20210716
